FAERS Safety Report 9115358 (Version 1)
Quarter: 2013Q1

REPORT INFORMATION
  Report Type: Spontaneous
  Country: US (occurrence: None)
  Receive Date: 20130129
  Receipt Date: 20130129
  Transmission Date: 20140127
  Serious: Yes (Death, Other)
  Sender: FDA-Public Use
  Company Number: 2013P1001062

PATIENT
  Age: 39 Year
  Sex: Male

DRUGS (6)
  1. RANITIDINE [Suspect]
     Route: 048
  2. AMOXICILLIN [Suspect]
     Route: 048
  3. TRAZODONE [Suspect]
     Route: 048
  4. ACETAMINOPHEN\HYDROCODONE [Suspect]
     Route: 048
  5. ALPRAZOLAM [Suspect]
     Route: 048
  6. METHADONE [Suspect]
     Route: 048

REACTIONS (2)
  - Respiratory arrest [None]
  - Cardiac arrest [None]
